FAERS Safety Report 8262899-0 (Version None)
Quarter: 2012Q2

REPORT INFORMATION
  Report Type: 
  Country: None (occurrence: None)
  Receive Date: 20120405
  Receipt Date: 20110112
  Transmission Date: 20120825
  Serious: Yes (Hospitalization)
  Sender: FDA-Public Use
  Company Number: JP-GLAXOSMITHKLINE-B0693581A

PATIENT
  Sex: Female
  Weight: 51 kg

DRUGS (8)
  1. TYKERB [Suspect]
     Indication: BREAST CANCER
     Dosage: 1250MG PER DAY
     Route: 048
     Dates: start: 20101209, end: 20110105
  2. XELODA [Suspect]
     Dosage: 1200MG PER DAY
     Route: 048
     Dates: start: 20110929, end: 20111013
  3. XELODA [Suspect]
     Dosage: 2400MG PER DAY
     Route: 048
     Dates: start: 20101209, end: 20110126
  4. TYKERB [Suspect]
     Dosage: 1000MG PER DAY
     Route: 048
     Dates: start: 20110106, end: 20111025
  5. PACLITAXEL [Suspect]
     Indication: BREAST CANCER
     Dosage: 100MG PER DAY
     Route: 042
     Dates: start: 20111031, end: 20111212
  6. DOMPERIDONE [Concomitant]
     Indication: NAUSEA
     Route: 048
     Dates: start: 20110106, end: 20120205
  7. PROTECADIN [Concomitant]
     Indication: DYSGEUSIA
     Route: 048
     Dates: start: 20111031, end: 20120205
  8. TRASTUZUMAB [Concomitant]
     Indication: BREAST CANCER
     Dosage: 90MG PER DAY
     Route: 042
     Dates: start: 20111031, end: 20111212

REACTIONS (1)
  - SKIN ULCER [None]
